FAERS Safety Report 10149401 (Version 1)
Quarter: 2014Q2

REPORT INFORMATION
  Report Type: Spontaneous
  Country: US (occurrence: None)
  Receive Date: 20140501
  Receipt Date: 20140501
  Transmission Date: 20141212
  Serious: Yes (Hospitalization)
  Sender: FDA-Public Use
  Company Number: None

PATIENT
  Age: 42 Year
  Sex: Male

DRUGS (9)
  1. ANTITHYMOCYTE GLOBULIN [Suspect]
     Indication: IMMUNOSUPPRESSION
     Route: 042
     Dates: start: 20130213, end: 20130214
  2. OXYCODONE [Concomitant]
  3. RANITIDINE [Concomitant]
  4. SULFAMETHOXAZOLE-TRIMETHOPRIM [Concomitant]
  5. TACROLIMUS [Concomitant]
  6. INSULIN [Concomitant]
  7. HEPARIN [Concomitant]
  8. HYDROMORPHONE [Concomitant]
  9. PREDNISONE [Concomitant]

REACTIONS (4)
  - Dyspnoea [None]
  - Hypoxia [None]
  - Hypercapnia [None]
  - Pulmonary oedema [None]
